FAERS Safety Report 8903841 (Version 6)
Quarter: 2014Q2

REPORT INFORMATION
  Report Type: Spontaneous
  Country: US (occurrence: US)
  Receive Date: 20121113
  Receipt Date: 20140507
  Transmission Date: 20141212
  Serious: Yes (Hospitalization)
  Sender: FDA-Public Use
  Company Number: US-009507513-1211USA003839

PATIENT
  Sex: Male
  Weight: 85.71 kg

DRUGS (7)
  1. PROPECIA [Suspect]
     Indication: ANDROGENETIC ALOPECIA
     Dosage: 1 MG, UNK
     Route: 048
     Dates: start: 20020913, end: 20040729
  2. PROPECIA [Suspect]
     Indication: ALOPECIA
  3. PROSCAR [Suspect]
     Indication: ANDROGENETIC ALOPECIA
     Dosage: 5 MG, ABOUT 1/4 TABLET DAILY
     Route: 048
     Dates: start: 20040903
  4. PROSCAR [Suspect]
     Indication: ALOPECIA
     Dosage: 5 MG, DAILY
     Route: 048
     Dates: start: 20041126
  5. PROSCAR [Suspect]
     Dosage: 5MG,1/2 TABLET DAILY
     Route: 048
     Dates: start: 20040813
  6. FINASTERIDE [Suspect]
     Indication: ANDROGENETIC ALOPECIA
     Dosage: 5 MG, 1/2 TABLET QOD
     Dates: end: 20100819
  7. FINASTERIDE [Suspect]
     Indication: ALOPECIA
     Dosage: 5 MG, 1/4 TABLET QD

REACTIONS (25)
  - Vertigo [Unknown]
  - Cognitive disorder [Unknown]
  - Blood testosterone decreased [Unknown]
  - Testicular disorder [Unknown]
  - Hernia [Unknown]
  - Pleurisy [Unknown]
  - Infection [Unknown]
  - Skin infection [Unknown]
  - Pain [Unknown]
  - Infection [Unknown]
  - Pyrexia [Unknown]
  - Bronchitis [Unknown]
  - Organic erectile dysfunction [Unknown]
  - Wrong technique in drug usage process [Unknown]
  - Cyst [Unknown]
  - Oedema peripheral [Unknown]
  - Ligament sprain [Unknown]
  - Arthralgia [Unknown]
  - Myopia [Unknown]
  - Acne [Unknown]
  - Genital hypoaesthesia [Unknown]
  - Adverse drug reaction [Unknown]
  - Wrong technique in drug usage process [Unknown]
  - Off label use [Unknown]
  - Sexual dysfunction [Unknown]
